FAERS Safety Report 9762766 (Version 1)
Quarter: 2013Q4

REPORT INFORMATION
  Report Type: Spontaneous
  Country: US (occurrence: US)
  Receive Date: 20131216
  Receipt Date: 20131216
  Transmission Date: 20140711
  Serious: Yes (Other)
  Sender: FDA-Public Use
  Company Number: US-009507513-1312USA003813

PATIENT
  Sex: 0

DRUGS (1)
  1. ISENTRESS [Suspect]
     Route: 048

REACTIONS (1)
  - Surgery [Unknown]
